FAERS Safety Report 9668131 (Version 1)
Quarter: 2013Q4

REPORT INFORMATION
  Report Type: Spontaneous
  Country: FR (occurrence: FR)
  Receive Date: 20131104
  Receipt Date: 20131104
  Transmission Date: 20140711
  Serious: Yes (Hospitalization)
  Sender: FDA-Public Use
  Company Number: FR-PFIZER INC-2013311316

PATIENT
  Sex: Male
  Weight: 2.83 kg

DRUGS (3)
  1. EFFEXOR LP [Suspect]
     Dosage: 75 MG, DAILY
     Route: 064
     Dates: start: 20130225, end: 20130327
  2. METHADONE [Suspect]
     Indication: DRUG DEPENDENCE
     Dosage: 40 MG, DAILY
     Route: 064
     Dates: start: 20130225, end: 20130327
  3. SERESTA [Suspect]
     Dosage: 75 MG, DAILY
     Route: 064
     Dates: start: 20130225, end: 20130327

REACTIONS (3)
  - Maternal exposure during pregnancy [Recovering/Resolving]
  - Neonatal respiratory depression [Recovering/Resolving]
  - Drug withdrawal syndrome neonatal [Recovered/Resolved]
